FAERS Safety Report 19114900 (Version 1)
Quarter: 2021Q2

REPORT INFORMATION
  Report Type: Spontaneous
  Country: CN (occurrence: CN)
  Receive Date: 20210408
  Receipt Date: 20210408
  Transmission Date: 20210717
  Serious: Yes (Other)
  Sender: FDA-Public Use
  Company Number: CN-BAXTER-2021BAX006625

PATIENT
  Age: 55 Year
  Sex: Female
  Weight: 90 kg

DRUGS (13)
  1. ENDOXAN [Suspect]
     Active Substance: CYCLOPHOSPHAMIDE
     Dosage: 4TH CYCLE OF CHEMOTHERAPY; CYCLOPHOSPHAMIDE 1 G + 0.9% SODIUM CHLORIDE 40 ML; (40 MINUTES)
     Route: 041
     Dates: start: 20210312, end: 20210312
  2. EPIRUBICIN HYDROCHLORIDE. [Suspect]
     Active Substance: EPIRUBICIN HYDROCHLORIDE
     Indication: BREAST CANCER
     Dosage: 1?3RD CYCLE OF CHEMOTHERAPY; EPIRUBICIN HYDROCHLORIDE + 5% GLUCOSE
     Route: 041
  3. DOCETAXEL. [Suspect]
     Active Substance: DOCETAXEL
     Indication: BREAST CANCER
     Dosage: 1?3RD CYCLE OF CHEMOTHERAPY; DOCETAXEL + 0.9% SODIUM CHLORIDE
     Route: 041
  4. 0.9% SODIUM CHLORIDE INJECTION [Suspect]
     Active Substance: SODIUM CHLORIDE
     Dosage: 4TH CYCLE OF CHEMOTHERAPY; CYCLOPHOSPHAMIDE 1 G + 0.9% SODIUM CHLORIDE 40 ML; (40 MINUTES)
     Route: 041
     Dates: start: 20210312, end: 20210312
  5. 0.9% SODIUM CHLORIDE INJECTION [Suspect]
     Active Substance: SODIUM CHLORIDE
     Dosage: 1?3RD CYCLE OF CHEMOTHERAPY; DOCETAXEL + 0.9% SODIUM CHLORIDE
     Route: 041
  6. EPIRUBICIN HYDROCHLORIDE. [Suspect]
     Active Substance: EPIRUBICIN HYDROCHLORIDE
     Dosage: 4TH CYCLE OF CHEMOTHERAPY; EPIRUBICIN HYDROCHLORIDE 160 MG + 5% GLUCOSE 100 ML; (40 MINUTES)
     Route: 041
     Dates: start: 20210312, end: 20210312
  7. PEGYLATED RECOMBINANT HUMAN GRANULOCYTE COLONY?STIMULATING FACTOR [Concomitant]
     Indication: PROPHYLAXIS
     Dosage: 24?48 HOURS AFTER FOURTH CYCLE CHEMOTHERAPY
     Route: 058
     Dates: start: 202103
  8. 5% GLUCOSE  INJECTION [Suspect]
     Active Substance: DEXTROSE
     Indication: MEDICATION DILUTION
     Dosage: 1?3RD CYCLE OF CHEMOTHERAPY; EPIRUBICIN HYDROCHLORIDE + 5% GLUCOSE
     Route: 041
  9. DOCETAXEL. [Suspect]
     Active Substance: DOCETAXEL
     Dosage: 4TH CYCLE OF CHEMOTHERAPY; DOCETAXEL 160 MG + 0.9% SODIUM CHLORIDE 500ML; (3 HOURS)
     Route: 041
     Dates: start: 20210312, end: 20210312
  10. ENDOXAN [Suspect]
     Active Substance: CYCLOPHOSPHAMIDE
     Indication: BREAST CANCER
     Dosage: 1?3RD CYCLE OF CHEMOTHERAPY; CYCLOPHOSPHAMIDE + 0.9% SODIUM CHLORIDE
     Route: 041
  11. 0.9% SODIUM CHLORIDE INJECTION [Suspect]
     Active Substance: SODIUM CHLORIDE
     Dosage: 4TH CYCLE OF CHEMOTHERAPY; DOCETAXEL 160 MG + 0.9% SODIUM CHLORIDE 500ML; (3 HOURS)
     Route: 041
     Dates: start: 20210312, end: 20210312
  12. 0.9% SODIUM CHLORIDE INJECTION [Suspect]
     Active Substance: SODIUM CHLORIDE
     Indication: MEDICATION DILUTION
     Dosage: 1?3RD CYCLE OF CHEMOTHERAPY; CYCLOPHOSPHAMIDE + 0.9% SODIUM CHLORIDE
     Route: 041
  13. 5% GLUCOSE  INJECTION [Suspect]
     Active Substance: DEXTROSE
     Dosage: 4TH CYCLE OF CHEMOTHERAPY; EPIRUBICIN HYDROCHLORIDE 160 MG + 5% GLUCOSE 100 ML (40 MINUTES)
     Route: 041
     Dates: start: 20210312, end: 20210312

REACTIONS (2)
  - Myelosuppression [Recovered/Resolved]
  - Myelosuppression [Recovered/Resolved]

NARRATIVE: CASE EVENT DATE: 20210318
